FAERS Safety Report 8015610-2 (Version None)
Quarter: 2011Q4

REPORT INFORMATION
  Report Type: 
  Country: None (occurrence: None)
  Receive Date: 20111230
  Receipt Date: 20111220
  Transmission Date: 20120403
  Serious: Yes (Other)
  Sender: FDA-Public Use
  Company Number: US-ELI_LILLY_AND_COMPANY-US201102006386

PATIENT
  Sex: Female

DRUGS (3)
  1. COUMADIN [Concomitant]
  2. FORTEO [Suspect]
     Indication: OSTEOPOROSIS
     Dosage: 20 UG, DAILY (1/D)
     Route: 065
     Dates: start: 20101201
  3. FORTEO [Suspect]
     Dosage: 20 UG, DAILY (1/D)
     Route: 065
     Dates: end: 20111129

REACTIONS (4)
  - RENAL IMPAIRMENT [None]
  - LABORATORY TEST ABNORMAL [None]
  - INJECTION SITE HAEMATOMA [None]
  - URINE OUTPUT DECREASED [None]
